FAERS Safety Report 8614481-0 (Version None)
Quarter: 2012Q3

REPORT INFORMATION
  Report Type: 
  Country: None (occurrence: None)
  Receive Date: 20120823
  Receipt Date: 20120815
  Transmission Date: 20120928
  Serious: Yes (Hospitalization)
  Sender: FDA-Public Use
  Company Number: PHHY2012BR071224

PATIENT
  Age: 76 Year
  Sex: Male

DRUGS (5)
  1. FORMOTEROL FUMARATE [Suspect]
     Dosage: EVERY 12 HRS
     Dates: end: 20110101
  2. TIOTROPIUM [Concomitant]
     Dosage: 5 UG,DAILY
  3. BETA 2 AGONIST [Concomitant]
  4. THEOPHYLLINE [Concomitant]
     Dosage: EVERY 12 HRS
  5. INFLUENZA VIRUS VACC SEASONAL INN [Suspect]
     Indication: IMMUNISATION
     Dosage: 1 DF

REACTIONS (3)
  - FORCED EXPIRATORY VOLUME DECREASED [None]
  - LUNG DISORDER [None]
  - CHRONIC OBSTRUCTIVE PULMONARY DISEASE [None]
